FAERS Safety Report 6400600-3 (Version None)
Quarter: 2009Q4

REPORT INFORMATION
  Report Type: 
  Country: None (occurrence: None)
  Receive Date: 20091014
  Receipt Date: 20091001
  Transmission Date: 20100525
  Serious: Yes (Other)
  Sender: FDA-Public Use
  Company Number: PHEH2009US12665

PATIENT
  Sex: Female

DRUGS (11)
  1. DIOVAN HCT [Suspect]
     Dosage: 320/25MG, UNK
  2. PREDNISONE TAB [Suspect]
     Indication: PLATELET COUNT
     Dosage: UNK
     Dates: end: 20090401
  3. SYNTHROID [Concomitant]
     Dosage: 0.5 MG, UNK
  4. PRAVASTATIN [Concomitant]
     Dosage: 20 MG, UNK
  5. VALTREX [Concomitant]
     Dosage: 500 MG, UNK
  6. METFORMIN HYDROCHLORIDE [Concomitant]
     Dosage: 1000 MG, UNK
  7. BYETTA [Concomitant]
     Dosage: 5 MCG, UNK
  8. CELEXA [Concomitant]
     Dosage: 20 MG, UNK
  9. XANAX [Concomitant]
     Dosage: 0.5 MG, UNK
  10. FISH OIL [Concomitant]
  11. WELCHOL [Concomitant]

REACTIONS (8)
  - ALOPECIA [None]
  - CONTUSION [None]
  - HYPOTENSION [None]
  - MALAISE [None]
  - PLATELET COUNT DECREASED [None]
  - PNEUMONIA [None]
  - THROMBOCYTOPENIA [None]
  - WEIGHT DECREASED [None]
